FAERS Safety Report 4304307-8 (Version None)
Quarter: 2004Q1

REPORT INFORMATION
  Report Type: 
  Country: None (occurrence: None)
  Receive Date: 20040223
  Receipt Date: 20040212
  Transmission Date: 20041129
  Serious: Yes (Life-Threatening, Other)
  Sender: FDA-Public Use
  Company Number: HQWYE960830DEC03

PATIENT
  Age: 16 Year
  Sex: Female

DRUGS (8)
  1. AMIODARONE HCL [Suspect]
     Indication: VENTRICULAR TACHYCARDIA
     Dosage: 400 MG 1X PER 1 DAY, ORAL
     Route: 048
     Dates: start: 20031120, end: 20031125
  2. AMANTADINE HCL [Concomitant]
  3. GLYCEOL (FRUCTOSE/GLYCEROL) [Concomitant]
  4. FLUMETASONE [Concomitant]
  5. PHYSIOLOL (GLUCONATE SODIUM/MAGNESIUM CHLORIDE ANHYDROUS/POTASSIUM CHL [Concomitant]
  6. ELECTROLYTE SOLUTIONS [Concomitant]
  7. OFLOXACIN [Concomitant]
  8. AMIODARONE HCL [Suspect]
     Dosage: 100 MG 1X PER 1 DAY, ORAL
     Route: 048
     Dates: start: 20031126, end: 20031218

REACTIONS (2)
  - BLOOD GLUCOSE INCREASED [None]
  - HYPOGLYCAEMIA [None]
